FAERS Safety Report 6671010-9 (Version None)
Quarter: 2010Q2

REPORT INFORMATION
  Report Type: 
  Country: None (occurrence: None)
  Receive Date: 20100407
  Receipt Date: 20100329
  Transmission Date: 20101027
  Serious: Yes (Hospitalization)
  Sender: FDA-Public Use
  Company Number: PHHY2010IT17882

PATIENT
  Sex: Male
  Weight: 18 kg

DRUGS (1)
  1. ICL670A ICL+DISTAB [Suspect]
     Dosage: 500 MG EVERY DAY AT WEEK
     Route: 048

REACTIONS (2)
  - HAEMOLYSIS [None]
  - PYREXIA [None]
